FAERS Safety Report 8539812 (Version 3)
Quarter: 2013Q4

REPORT INFORMATION
  Report Type: Spontaneous
  Country: US (occurrence: US)
  Receive Date: 20120502
  Receipt Date: 20131107
  Transmission Date: 20140711
  Serious: No
  Sender: FDA-Public Use
  Company Number: US-PFIZER INC-2012104412

PATIENT
  Age: 43 Year
  Sex: Male
  Weight: 143 kg

DRUGS (1)
  1. LYRICA [Suspect]
     Indication: FIBROMYALGIA
     Dosage: 150 MG, 3X/DAY
     Route: 048
     Dates: start: 2009

REACTIONS (5)
  - Pain [Unknown]
  - Feeling abnormal [Unknown]
  - Malaise [Unknown]
  - Nasopharyngitis [Unknown]
  - Abdominal discomfort [Unknown]
